FAERS Safety Report 25553707 (Version 2)
Quarter: 2025Q3

REPORT INFORMATION
  Report Type: Spontaneous
  Country: GB (occurrence: GB)
  Receive Date: 20250715
  Receipt Date: 20250909
  Transmission Date: 20251020
  Serious: Yes (Other)
  Sender: OCTAPHARMA
  Company Number: None

PATIENT
  Sex: Female

DRUGS (1)
  1. OCTAPLAS [Suspect]
     Active Substance: PLASMA PROTEIN FRACTION (HUMAN)
     Indication: Plasmapheresis
     Dates: start: 20250703, end: 20250703

REACTIONS (1)
  - Loss of consciousness [Recovered/Resolved]

NARRATIVE: CASE EVENT DATE: 20250703
